FAERS Safety Report 8667891 (Version 3)
Quarter: 2013Q1

REPORT INFORMATION
  Report Type: Spontaneous
  Country: US (occurrence: US)
  Receive Date: 20120717
  Receipt Date: 20130103
  Transmission Date: 20140127
  Serious: Yes (Other)
  Sender: FDA-Public Use
  Company Number: US-JNJFOC-20120704424

PATIENT
  Age: 49 Year
  Sex: Female
  Weight: 81.65 kg

DRUGS (24)
  1. NUCYNTA ER [Suspect]
     Indication: PAIN IN EXTREMITY
     Dosage: 100 MG TWICE DAY
     Route: 048
     Dates: start: 20120702
  2. NUCYNTA ER [Suspect]
     Indication: CHEST PAIN
     Dosage: 100 MG TWICE DAY
     Route: 048
     Dates: start: 20120702
  3. NUCYNTA ER [Suspect]
     Indication: NECK PAIN
     Dosage: 100 MG TWICE DAY
     Route: 048
     Dates: start: 20120702
  4. NUCYNTA ER [Suspect]
     Indication: BACK PAIN
     Dosage: 100 MG TWICE DAY
     Route: 048
     Dates: start: 20120702
  5. NUCYNTA ER [Suspect]
     Indication: BACK INJURY
     Dosage: 100 MG TWICE DAY
     Route: 048
     Dates: start: 20120702
  6. NUCYNTA ER [Suspect]
     Indication: BACK PAIN
     Dosage: 100 MG TWICE DAY
     Route: 048
     Dates: start: 20120702
  7. MORPHINE [Suspect]
     Indication: PRODUCT USED FOR UNKNOWN INDICATION
     Route: 065
  8. MORPHINE [Suspect]
     Indication: PRODUCT USED FOR UNKNOWN INDICATION
     Route: 065
  9. WELLBUTRIN [Suspect]
     Indication: DEPRESSION
     Route: 065
  10. SERAX [Suspect]
     Indication: SLEEP DISORDER
     Route: 065
  11. SERAX [Suspect]
     Indication: DEPRESSION
     Route: 065
  12. KLONOPIN [Suspect]
     Indication: RESTLESS LEGS SYNDROME
     Route: 065
  13. VALTREX [Suspect]
     Indication: RASH
     Route: 065
  14. UNKNOWN MEDICATION [Suspect]
     Indication: PRODUCT USED FOR UNKNOWN INDICATION
     Route: 065
  15. LIDODERM PATCH [Suspect]
     Indication: PAIN
     Route: 065
  16. VITAMIN B12 [Suspect]
     Indication: VITAMIN B12 DEFICIENCY
     Route: 060
  17. FOLIC ACID [Suspect]
     Indication: FOLATE DEFICIENCY
     Route: 065
  18. PROBIOTICS [Suspect]
     Indication: PRODUCT USED FOR UNKNOWN INDICATION
     Route: 065
  19. ADVIL [Suspect]
     Indication: PRODUCT USED FOR UNKNOWN INDICATION
     Route: 065
  20. BENADRYL [Suspect]
     Indication: PRODUCT USED FOR UNKNOWN INDICATION
     Route: 065
  21. MULTIVITAMINS [Suspect]
     Indication: PRODUCT USED FOR UNKNOWN INDICATION
     Route: 065
  22. IMITREX [Suspect]
     Indication: MIGRAINE
     Route: 045
  23. XANAX [Suspect]
     Indication: PAIN
     Route: 065
  24. XANAX [Suspect]
     Indication: PANIC ATTACK
     Route: 065

REACTIONS (10)
  - Withdrawal syndrome [Not Recovered/Not Resolved]
  - Dysstasia [Not Recovered/Not Resolved]
  - Headache [Not Recovered/Not Resolved]
  - Tremor [Not Recovered/Not Resolved]
  - Local swelling [Not Recovered/Not Resolved]
  - Hot flush [Not Recovered/Not Resolved]
  - Laryngitis [Not Recovered/Not Resolved]
  - Somnolence [Not Recovered/Not Resolved]
  - Drug ineffective [Not Recovered/Not Resolved]
  - Sleep disorder [Not Recovered/Not Resolved]
